FAERS Safety Report 20703223 (Version 1)
Quarter: 2022Q2

REPORT INFORMATION
  Report Type: Spontaneous
  Country: US (occurrence: US)
  Receive Date: 20220413
  Receipt Date: 20220413
  Transmission Date: 20220721
  Serious: Yes (Other)
  Sender: FDA-Public Use
  Company Number: US-drreddys-SPO/USA/22/0148497

PATIENT
  Age: 40 Year
  Sex: Female

DRUGS (1)
  1. ZENATANE [Suspect]
     Active Substance: ISOTRETINOIN
     Indication: Product used for unknown indication
     Dosage: RMA ISSUE DATE: 23 DECEMBER 2021 07:18:13 PM, 21 JANUARY 2022 06:51:37 PM

REACTIONS (2)
  - Stress [Unknown]
  - Adverse drug reaction [Unknown]
